FAERS Safety Report 9415829 (Version 2)
Quarter: 2013Q3

REPORT INFORMATION
  Report Type: Spontaneous
  Country: BE (occurrence: BE)
  Receive Date: 20130724
  Receipt Date: 20130812
  Transmission Date: 20140515
  Serious: Yes (Disabling, Other)
  Sender: FDA-Public Use
  Company Number: BE-ROCHE-1252157

PATIENT
  Age: 16 Year
  Sex: Male
  Weight: 63 kg

DRUGS (5)
  1. ROACCUTANE [Suspect]
     Indication: ACNE
     Route: 048
     Dates: start: 20100915, end: 20100928
  2. ROACCUTANE [Suspect]
     Route: 048
     Dates: start: 20100929, end: 20101013
  3. ROACCUTANE [Suspect]
     Route: 048
     Dates: start: 20101014, end: 20110411
  4. ROACCUTANE [Suspect]
     Route: 065
     Dates: start: 20111201, end: 20120315
  5. NUTRITIONAL SUPPLEMENT [Concomitant]

REACTIONS (3)
  - Corneal dystrophy [Recovering/Resolving]
  - Dry eye [Unknown]
  - Vision blurred [Unknown]
